FAERS Safety Report 22854248 (Version 2)
Quarter: 2023Q4

REPORT INFORMATION
  Report Type: Report from Study
  Country: FR (occurrence: FR)
  Receive Date: 20230823
  Receipt Date: 20231018
  Transmission Date: 20240110
  Serious: Yes (Life-Threatening, Hospitalization, Other)
  Sender: FDA-Public Use
  Company Number: FR-PFIZER INC-PV202300141040

PATIENT
  Age: 69 Year
  Sex: Female
  Weight: 54 kg

DRUGS (2)
  1. LORLATINIB [Suspect]
     Active Substance: LORLATINIB
     Indication: Bronchial carcinoma
     Dosage: 100 MG, 1X/DAY
     Route: 048
     Dates: start: 20221123
  2. LORLATINIB [Suspect]
     Active Substance: LORLATINIB
     Dosage: 50 MG, 1X/DAY
     Route: 048
     Dates: start: 202303

REACTIONS (5)
  - Ischaemic stroke [Recovered/Resolved with Sequelae]
  - Hypercholesterolaemia [Unknown]
  - Amnesia [Unknown]
  - Balance disorder [Unknown]
  - Weight increased [Unknown]

NARRATIVE: CASE EVENT DATE: 20221101
